FAERS Safety Report 9486061 (Version 1)
Quarter: 2013Q3

REPORT INFORMATION
  Report Type: Spontaneous
  Country: US (occurrence: US)
  Receive Date: 20130829
  Receipt Date: 20130829
  Transmission Date: 20140515
  Serious: Yes (Hospitalization)
  Sender: FDA-Public Use
  Company Number: US-JNJFOC-20130812927

PATIENT
  Sex: Male

DRUGS (3)
  1. TOPAMAX [Suspect]
     Indication: CONVULSION
     Route: 048
  2. CLOBAZAM [Concomitant]
     Indication: CONVULSION
     Route: 065
  3. CLOBAZAM [Concomitant]
     Indication: CONVULSION
     Route: 065

REACTIONS (2)
  - Hospitalisation [Unknown]
  - Device occlusion [Unknown]
